FAERS Safety Report 4843828-6 (Version None)
Quarter: 2005Q4

REPORT INFORMATION
  Report Type: 
  Country: None (occurrence: None)
  Receive Date: 20051202
  Receipt Date: 20051122
  Transmission Date: 20060501
  Serious: Yes (Death, Hospitalization)
  Sender: FDA-Public Use
  Company Number: FR-GLAXOSMITHKLINE-B0401450A

PATIENT
  Age: 57 Year
  Sex: Male

DRUGS (9)
  1. ZIAGEN [Suspect]
     Indication: HIV INFECTION
     Route: 048
  2. AMOXICILLIN AND CLAVULANATE POTASSIUM [Suspect]
     Route: 048
     Dates: start: 20050506
  3. BACTRIM [Suspect]
     Route: 048
  4. DEXAMBUTOL [Suspect]
     Indication: MYCOBACTERIAL INFECTION
     Route: 048
     Dates: start: 20050506
  5. ZECLAR [Suspect]
     Indication: MYCOBACTERIAL INFECTION
     Route: 048
     Dates: start: 20050506
  6. ANSATIPINE [Suspect]
     Indication: MYCOBACTERIAL INFECTION
     Route: 065
     Dates: start: 20050506, end: 20050510
  7. TELZIR [Concomitant]
     Indication: HIV INFECTION
     Route: 048
  8. NORVIR [Concomitant]
     Indication: HIV INFECTION
     Route: 048
  9. MOPRAL [Concomitant]
     Route: 048

REACTIONS (5)
  - DEATH [None]
  - HEPATITIS [None]
  - MYCOBACTERIAL INFECTION [None]
  - PYREXIA [None]
  - RESPIRATORY DISORDER [None]
